FAERS Safety Report 9491676 (Version 2)
Quarter: 2013Q1

REPORT INFORMATION
  Report Type: Not Available
  Country: US (occurrence: US)
  Receive Date: 20121219
  Receipt Date: 20121219
  Transmission Date: 20140127
  Serious: Yes (Other)
  Sender: FDA-Public Use
  Company Number: US-LUNDBECK-DKLU1085204

PATIENT
  Sex: Male

DRUGS (9)
  1. ONFI [Suspect]
     Indication: CONVULSION
     Route: 048
     Dates: start: 20120816
  2. ONFI [Suspect]
     Route: 048
     Dates: start: 201208
  3. ONFI [Suspect]
     Route: 048
     Dates: start: 20120925, end: 20121003
  4. ONFI [Suspect]
     Route: 048
     Dates: start: 20120925, end: 20121003
  5. ONFI [Suspect]
     Route: 048
     Dates: start: 20121004, end: 20121005
  6. ONFI [Suspect]
     Route: 048
     Dates: start: 20121006, end: 20121006
  7. VIMPAT [Concomitant]
     Indication: PRODUCT USED FOR UNKNOWN INDICATION
  8. DEPAKOTE [Concomitant]
     Indication: PRODUCT USED FOR UNKNOWN INDICATION
  9. MULTIVITAMIN [Concomitant]
     Indication: PRODUCT USED FOR UNKNOWN INDICATION

REACTIONS (1)
  - Rash [Recovered/Resolved]
